FAERS Safety Report 12430329 (Version 2)
Quarter: 2016Q3

REPORT INFORMATION
  Report Type: Spontaneous
  Country: US (occurrence: US)
  Receive Date: 20160602
  Receipt Date: 20160809
  Transmission Date: 20161109
  Serious: Yes (Death, Hospitalization, Other)
  Sender: FDA-Public Use
  Company Number: US-GLAXOSMITHKLINE-US2016GSK079205

PATIENT
  Sex: Male

DRUGS (3)
  1. BREO ELLIPTA [Suspect]
     Active Substance: FLUTICASONE FUROATE\VILANTEROL TRIFENATATE
     Indication: DYSPNOEA
     Dosage: UNK, U
  2. VENTOLIN HFA [Suspect]
     Active Substance: ALBUTEROL SULFATE
     Indication: DYSPNOEA
     Dosage: UNK, U
  3. INCRUSE ELLIPTA [Suspect]
     Active Substance: UMECLIDINIUM BROMIDE
     Indication: DYSPNOEA
     Dosage: UNK, U

REACTIONS (8)
  - Drug ineffective [Unknown]
  - Pulmonary fibrosis [Unknown]
  - Angioplasty [Fatal]
  - Stent placement [Fatal]
  - Coronary artery disease [Fatal]
  - Chronic obstructive pulmonary disease [Unknown]
  - Cerebral haemorrhage [Fatal]
  - Hospitalisation [Not Recovered/Not Resolved]
